FAERS Safety Report 20733641 (Version 1)
Quarter: 2022Q2

REPORT INFORMATION
  Report Type: Report from Study
  Country: US (occurrence: None)
  Receive Date: 20220421
  Receipt Date: 20220421
  Transmission Date: 20220720
  Serious: Yes (Other)
  Sender: FDA-Public Use
  Company Number: 2022A150737

PATIENT
  Sex: Female

DRUGS (1)
  1. FASLODEX [Suspect]
     Active Substance: FULVESTRANT
     Route: 030

REACTIONS (5)
  - Sciatic nerve injury [Not Recovered/Not Resolved]
  - Limb injury [Not Recovered/Not Resolved]
  - Atrophy [Not Recovered/Not Resolved]
  - Wrong technique in product usage process [Recovered/Resolved]
  - Iatrogenic injury [Not Recovered/Not Resolved]
